FAERS Safety Report 6840001-7 (Version None)
Quarter: 2010Q3

REPORT INFORMATION
  Report Type: 
  Country: None (occurrence: None)
  Receive Date: 20100714
  Receipt Date: 20100708
  Transmission Date: 20110219
  Serious: Yes (Hospitalization)
  Sender: FDA-Public Use
  Company Number: BR-ROCHE-710313

PATIENT
  Sex: Female
  Weight: 63 kg

DRUGS (9)
  1. TRASTUZUMAB [Suspect]
     Indication: BREAST CANCER
     Dosage: LOADING DOSE
     Route: 042
     Dates: start: 20090817
  2. TRASTUZUMAB [Suspect]
     Dosage: LAST DOSE PRIOR TO SAE 02 JUN 2010. MAINTAINENCE DOSE.
     Route: 042
  3. PERTUZUMAB [Suspect]
     Indication: BREAST CANCER
     Dosage: FREQUENCY: 21/21, LAST DOSE PRIOR TO SAE: 21 OCTOBER 2009
     Route: 042
     Dates: start: 20090817
  4. DOCETAXEL [Suspect]
     Indication: BREAST CANCER
     Dosage: FREQUENCY: 21/21, LAST DOSE PRIOR TO SAE: 10 FEB 2010
     Route: 042
     Dates: start: 20091210
  5. CYCLOPHOSPHAMIDE [Suspect]
     Indication: BREAST CANCER
     Dosage: FREQUENCY: 21/21, LAST DOSE PRIOR TO SAE: 20 APRIL 2010
     Route: 042
     Dates: start: 20100303
  6. EPIRUBICIN [Suspect]
     Indication: BREAST CANCER
     Dosage: FREQUENCY: 21/21, LAST DOSE PRIOR TO SAE: 20 APRIL 2010
     Route: 042
     Dates: start: 20100303
  7. FLUOROURACIL [Suspect]
     Indication: BREAST CANCER
     Dosage: FREQUENCY: 21/21, LAST DOSE PRIOR TO SAE: 20 APRIL 2010
     Route: 042
     Dates: start: 20100303
  8. CITALOPRAM HYDROBROMIDE [Concomitant]
     Dosage: DRUG REPORTED AS CYTALOPRAM
     Dates: start: 20090201
  9. LITHIUM CARBONATE [Concomitant]
     Dates: start: 20090701

REACTIONS (1)
  - METRORRHAGIA [None]
